FAERS Safety Report 8479996-7 (Version None)
Quarter: 2012Q2

REPORT INFORMATION
  Report Type: 
  Country: None (occurrence: None)
  Receive Date: 20120629
  Receipt Date: 20120620
  Transmission Date: 20120825
  Serious: Yes (Other)
  Sender: FDA-Public Use
  Company Number: US-ABBOTT-12P-163-0940313-00

PATIENT
  Sex: Female
  Weight: 50.848 kg

DRUGS (10)
  1. NAPROXEN (ALEVE) [Suspect]
     Indication: PAIN
     Dosage: 2-3 PILLS DURING THE DAY, 4 PILLS AT NIGHT
  2. LUPRON DEPOT [Suspect]
     Dates: start: 20070201, end: 20070201
  3. LUPRON DEPOT [Suspect]
     Dates: start: 20101101, end: 20101101
  4. MEGA RED KRILL OIL [Concomitant]
     Indication: PRODUCT USED FOR UNKNOWN INDICATION
     Dosage: 1 PILL DAILY
     Route: 048
  5. LUPRON DEPOT [Suspect]
     Route: 030
     Dates: start: 20120501
  6. BENTYL [Suspect]
     Indication: MUSCLE SPASMS
  7. LUPRON DEPOT [Suspect]
     Indication: ENDOMETRIOSIS
     Dates: start: 20061209, end: 20061209
  8. BENTYL [Suspect]
     Indication: PAIN
     Dosage: 1-2 PILLS AT NIGHT, AS NEEDED
     Route: 048
  9. NORETHINDRONE ACETATE [Suspect]
     Indication: PRODUCT USED FOR UNKNOWN INDICATION
     Route: 048
     Dates: start: 20061209
  10. EMERGEN C [Concomitant]
     Indication: PRODUCT USED FOR UNKNOWN INDICATION
     Dosage: MULTIVITAMIN PACKETS, 1 DAILY
     Route: 048

REACTIONS (13)
  - VAGINAL DISCHARGE [None]
  - ENDOMETRIOSIS [None]
  - UTERINE LEIOMYOMA [None]
  - UTERINE HAEMORRHAGE [None]
  - NYSTAGMUS [None]
  - ABDOMINAL PAIN [None]
  - ABDOMINAL DISTENSION [None]
  - MENORRHAGIA [None]
  - VAGINAL HAEMORRHAGE [None]
  - MIGRAINE WITH AURA [None]
  - UTERINE MASS [None]
  - VISION BLURRED [None]
  - EYE HAEMORRHAGE [None]
